FAERS Safety Report 5735081-6 (Version None)
Quarter: 2008Q2

REPORT INFORMATION
  Report Type: 
  Country: None (occurrence: None)
  Receive Date: 20080508
  Receipt Date: 20080425
  Transmission Date: 20081010
  Serious: Yes (Hospitalization)
  Sender: FDA-Public Use
  Company Number: 2008BI011346

PATIENT
  Age: 58 Year
  Sex: Female

DRUGS (1)
  1. AVONEX [Suspect]
     Indication: MULTIPLE SCLEROSIS
     Dosage: 30 UG;QW;IM
     Route: 030

REACTIONS (7)
  - ASTHMA [None]
  - FATIGUE [None]
  - INFLUENZA [None]
  - MIGRAINE [None]
  - OEDEMA PERIPHERAL [None]
  - OPTIC NEURITIS [None]
  - PAIN IN EXTREMITY [None]
